FAERS Safety Report 9918846 (Version 4)
Quarter: 2014Q3

REPORT INFORMATION
  Report Type: Spontaneous
  Country: US (occurrence: US)
  Receive Date: 20140224
  Receipt Date: 20140819
  Transmission Date: 20150326
  Serious: Yes (Hospitalization, Other)
  Sender: FDA-Public Use
  Company Number: US-BAYER-2014-026740

PATIENT
  Age: 24 Year
  Sex: Female
  Weight: 54 kg

DRUGS (3)
  1. MIRENA [Suspect]
     Active Substance: LEVONORGESTREL
     Indication: CONTRACEPTION
     Dosage: 20 MCG/24HR, CONT
     Route: 015
     Dates: start: 20091016, end: 20100609
  2. METROGEL [Concomitant]
     Active Substance: METRONIDAZOLE
     Indication: BACTERIAL VAGINOSIS
  3. HYDROCODONE BITARTRATE [Concomitant]
     Active Substance: HYDROCODONE BITARTRATE

REACTIONS (10)
  - Injury [None]
  - Device issue [None]
  - Anxiety [None]
  - Uterine perforation [None]
  - Abdominal pain [None]
  - Pelvic pain [None]
  - Depression [None]
  - Genital haemorrhage [None]
  - Abdominal discomfort [None]
  - Emotional distress [None]

NARRATIVE: CASE EVENT DATE: 200911
